FAERS Safety Report 17773142 (Version 2)
Quarter: 2020Q2

REPORT INFORMATION
  Report Type: Spontaneous
  Country: US (occurrence: US)
  Receive Date: 20200513
  Receipt Date: 20200602
  Transmission Date: 20200714
  Serious: Yes (Hospitalization)
  Sender: FDA-Public Use
  Company Number: US-ASTRAZENECA-2020SE60142

PATIENT
  Age: 77 Year
  Sex: Female
  Weight: 70.3 kg

DRUGS (1)
  1. BYDUREON BCISE [Suspect]
     Active Substance: EXENATIDE
     Indication: TYPE 2 DIABETES MELLITUS
     Route: 058
     Dates: start: 2018

REACTIONS (9)
  - Weight increased [Unknown]
  - Liquid product physical issue [Unknown]
  - Herpes zoster [Recovering/Resolving]
  - Weight decreased [Unknown]
  - Intentional product misuse [Unknown]
  - Tooth disorder [Unknown]
  - Drug delivery system issue [Unknown]
  - Swelling face [Unknown]
  - Product dose omission [Unknown]

NARRATIVE: CASE EVENT DATE: 2019
